FAERS Safety Report 7048126-0 (Version None)
Quarter: 2010Q4

REPORT INFORMATION
  Report Type: 
  Country: None (occurrence: None)
  Receive Date: 20101015
  Receipt Date: 20101008
  Transmission Date: 20110411
  Serious: Yes (Other)
  Sender: FDA-Public Use
  Company Number: US-JNJCH-2010023367

PATIENT
  Age: 87 Year
  Sex: Female
  Weight: 45.8 kg

DRUGS (5)
  1. BENADRYL ALLERGY DYE-FREE [Suspect]
     Indication: RASH
     Dosage: TEXT:ONE EVERY SIX HOURS
     Route: 048
     Dates: start: 20101007, end: 20101007
  2. MICARDIS [Concomitant]
     Indication: HYPERTENSION
     Dosage: TEXT:ONE TIME DAILY
     Route: 065
  3. VITAMIN B [Concomitant]
     Indication: PRODUCT USED FOR UNKNOWN INDICATION
     Dosage: TEXT:UNKNOWN
     Route: 065
  4. VITAMIN D [Concomitant]
     Indication: PRODUCT USED FOR UNKNOWN INDICATION
     Dosage: TEXT:UNKNOWN
     Route: 065
  5. CALCIUM [Concomitant]
     Indication: PRODUCT USED FOR UNKNOWN INDICATION
     Route: 065

REACTIONS (3)
  - BLOOD PRESSURE INCREASED [None]
  - HEADACHE [None]
  - OFF LABEL USE [None]
